FAERS Safety Report 5239552-0 (Version None)
Quarter: 2007Q1

REPORT INFORMATION
  Report Type: 
  Country: None (occurrence: None)
  Receive Date: 20070209
  Receipt Date: 20061108
  Transmission Date: 20070707
  Serious: Yes (Other)
  Sender: FDA-Public Use
  Company Number: 30576

PATIENT
  Age: 62 Year
  Sex: Male

DRUGS (1)
  1. ALDARA [Suspect]
     Indication: SCAR
     Dosage: 1 DF, 3 TIMES WEEKLY (1 DOSAGE FORMS, 3 IN 1 WEEK (S)) TOPICAL
     Route: 061
     Dates: start: 20060726, end: 20060801

REACTIONS (2)
  - APPLICATION SITE MASS [None]
  - SARCOMA [None]
